FAERS Safety Report 5185238-0 (Version None)
Quarter: 2006Q4

REPORT INFORMATION
  Report Type: 
  Country: None (occurrence: None)
  Receive Date: 20061220
  Receipt Date: 20060626
  Transmission Date: 20070319
  Serious: No
  Sender: FDA-Public Use
  Company Number: US-GLAXOSMITHKLINE-A0610288A

PATIENT
  Age: 65 Year
  Sex: Male

DRUGS (2)
  1. NICODERM CQ [Suspect]
     Route: 062
  2. COMMIT [Suspect]
     Dosage: 4MG UNKNOWN
     Route: 048

REACTIONS (3)
  - APPLICATION SITE ERYTHEMA [None]
  - DRUG INEFFECTIVE [None]
  - INTENTIONAL DRUG MISUSE [None]
